FAERS Safety Report 6668867-4 (Version None)
Quarter: 2010Q2

REPORT INFORMATION
  Report Type: 
  Country: None (occurrence: None)
  Receive Date: 20100406
  Receipt Date: 20100329
  Transmission Date: 20101027
  Serious: Yes (Other)
  Sender: FDA-Public Use
  Company Number: US-ROCHE-637038

PATIENT
  Sex: Female
  Weight: 106.6 kg

DRUGS (11)
  1. AVASTIN [Suspect]
     Indication: DIABETIC RETINOPATHY
     Dosage: UNK, OU, INTRAVITREAL
     Route: 031
  2. AVASTIN [Suspect]
     Dosage: UNK, OU, INTRAVITREAL
     Route: 031
     Dates: start: 20090107, end: 20090107
  3. AVASTIN [Suspect]
     Dosage: UNK, OU, INTRAVITREAL
     Route: 031
     Dates: start: 20090127, end: 20090127
  4. AVASTIN [Suspect]
     Dosage: ONE INJECTION IN THE RIGHT EYE
     Route: 031
     Dates: start: 20091101
  5. AVASTIN [Suspect]
     Dosage: FIRST INJECTION IN LEFT EYE ON 11 DEC 2009 AND ON UNKNOWN DATE SECOND INJECTIN IN LEFT EYE
     Route: 031
     Dates: start: 20091211
  6. NORVASC [Concomitant]
  7. LISINOPRIL [Concomitant]
  8. INSULIN [Concomitant]
  9. GLUCOVANCE [Concomitant]
  10. LANTUS [Concomitant]
  11. VITAMIN TAB [Concomitant]
     Dosage: DRUG: V-CAPS (VITAMINS)

REACTIONS (5)
  - BLINDNESS [None]
  - CATARACT [None]
  - DRUG INEFFECTIVE [None]
  - EYE HAEMORRHAGE [None]
  - VISUAL ACUITY REDUCED [None]
